FAERS Safety Report 21734089 (Version 1)
Quarter: 2022Q4

REPORT INFORMATION
  Report Type: Spontaneous
  Country: US (occurrence: US)
  Receive Date: 20221215
  Receipt Date: 20221215
  Transmission Date: 20230113
  Serious: No
  Sender: FDA-Public Use
  Company Number: US-SUN PHARMACEUTICAL INDUSTRIES LTD-2022R1-362033

PATIENT
  Sex: Female

DRUGS (1)
  1. WINLEVI [Suspect]
     Active Substance: CLASCOTERONE
     Indication: Product used for unknown indication
     Dosage: UNK UNK,TO FACE TWICE DAILY
     Route: 061
     Dates: start: 20220603, end: 20220620

REACTIONS (2)
  - Skin irritation [Recovered/Resolved]
  - Product quality issue [Unknown]
